FAERS Safety Report 7550376-1 (Version None)
Quarter: 2011Q2

REPORT INFORMATION
  Report Type: 
  Country: None (occurrence: None)
  Receive Date: 20110615
  Receipt Date: 20110603
  Transmission Date: 20111010
  Serious: Yes (Hospitalization)
  Sender: FDA-Public Use
  Company Number: IT-BAYER-2011-042733

PATIENT
  Age: 34 Year
  Sex: Female

DRUGS (2)
  1. CIPROFLOXACIN [Suspect]
     Indication: ERYSIPELAS
     Dosage: 1000 MG, BID
     Route: 048
     Dates: start: 20110427, end: 20110429
  2. CIPROFLOXACIN [Suspect]
     Indication: ERYSIPELAS
     Dosage: DAILY DOSE 1 G
     Route: 048
     Dates: start: 20110420, end: 20110426

REACTIONS (1)
  - RENAL TUBULAR NECROSIS [None]
